FAERS Safety Report 24869920 (Version 1)
Quarter: 2025Q1

REPORT INFORMATION
  Report Type: Spontaneous
  Country: US (occurrence: None)
  Receive Date: 20250120
  Receipt Date: 20250120
  Transmission Date: 20250408
  Serious: Yes (Other)
  Sender: FDA-CTU
  Company Number: None

PATIENT
  Age: 63 Year
  Sex: Female
  Weight: 67.5 kg

DRUGS (1)
  1. FLUOXETINE [Suspect]
     Active Substance: FLUOXETINE HYDROCHLORIDE
     Indication: Depression
     Route: 048
     Dates: start: 20150715, end: 20150716

REACTIONS (6)
  - Throat tightness [None]
  - Heart rate increased [None]
  - Dyspnoea [None]
  - Chest discomfort [None]
  - Flushing [None]
  - Allergic reaction to excipient [None]

NARRATIVE: CASE EVENT DATE: 20150716
